FAERS Safety Report 19003061 (Version 2)
Quarter: 2021Q2

REPORT INFORMATION
  Report Type: Report from Study
  Country: JP (occurrence: JP)
  Receive Date: 20210312
  Receipt Date: 20210603
  Transmission Date: 20210717
  Serious: Yes (Hospitalization)
  Sender: FDA-Public Use
  Company Number: JP-JNJFOC-A-CH2019-194043

PATIENT
  Age: 5 Year
  Sex: Female

DRUGS (21)
  1. ENALART [Concomitant]
     Active Substance: ENALAPRIL MALEATE
     Indication: PULMONARY ARTERIAL HYPERTENSION
     Route: 048
     Dates: start: 20170124
  2. ENALART [Concomitant]
     Active Substance: ENALAPRIL MALEATE
     Dosage: 1.5?1.7MG
     Route: 048
  3. ADCIRCA [Concomitant]
     Active Substance: TADALAFIL
     Indication: PULMONARY ARTERIAL HYPERTENSION
     Route: 048
     Dates: start: 20170124
  4. OPSUMIT [Suspect]
     Active Substance: MACITENTAN
     Dosage: 1.5 MG, IN THE EVENING
     Route: 048
     Dates: start: 20170221, end: 20170320
  5. UPTRAVI [Suspect]
     Active Substance: SELEXIPAG
     Indication: PULMONARY ARTERIAL HYPERTENSION
     Dosage: 0.06?0.12MG
     Route: 048
     Dates: start: 20180116
  6. WARFARIN K [Concomitant]
     Active Substance: WARFARIN POTASSIUM
     Dosage: 1.4?1.6MG
     Route: 048
  7. ARTIST [Concomitant]
     Active Substance: CARVEDILOL
     Dosage: 2.25?3.4MG
     Route: 048
     Dates: start: 20161222
  8. ALDACTONE A [Concomitant]
     Active Substance: SPIRONOLACTONE
     Dosage: 11.5?12.5MG
     Route: 048
  9. DORNER [Concomitant]
     Active Substance: BERAPROST SODIUM
     Indication: PULMONARY ARTERIAL HYPERTENSION
     Route: 048
     Dates: start: 20161222, end: 20171227
  10. FUROSEMIDE. [Concomitant]
     Active Substance: FUROSEMIDE
     Dosage: 11.5?12.5MG
     Route: 048
  11. WARFARIN K [Concomitant]
     Active Substance: WARFARIN POTASSIUM
     Indication: PULMONARY ARTERIAL HYPERTENSION
     Route: 048
     Dates: start: 20161122
  12. DIGOSIN [Concomitant]
     Active Substance: DIGOXIN
     Indication: PULMONARY ARTERIAL HYPERTENSION
     Route: 048
     Dates: start: 20160303
  13. ADCIRCA [Concomitant]
     Active Substance: TADALAFIL
     Dosage: 15?17MG
     Route: 048
  14. ALDACTONE A [Concomitant]
     Active Substance: SPIRONOLACTONE
     Indication: PULMONARY ARTERIAL HYPERTENSION
     Route: 048
     Dates: start: 20170124
  15. FUROSEMIDE. [Concomitant]
     Active Substance: FUROSEMIDE
     Indication: PULMONARY ARTERIAL HYPERTENSION
     Route: 048
     Dates: start: 20170124
  16. UPTRAVI [Suspect]
     Active Substance: SELEXIPAG
     Dosage: 0.12 ? 0.544MG
     Route: 048
  17. ARTIST [Concomitant]
     Active Substance: CARVEDILOL
     Indication: PULMONARY ARTERIAL HYPERTENSION
     Route: 048
     Dates: start: 20161222
  18. OPSUMIT [Suspect]
     Active Substance: MACITENTAN
     Indication: PULMONARY ARTERIAL HYPERTENSION
     Dosage: 3 MG, IN THE EVENING
     Route: 048
     Dates: start: 20170321, end: 20180912
  19. OPSUMIT [Suspect]
     Active Substance: MACITENTAN
     Dosage: 3.2 MG, IN THE EVENING
     Route: 048
     Dates: start: 20180913, end: 20181015
  20. OPSUMIT [Suspect]
     Active Substance: MACITENTAN
     Dosage: 3.4 MG, IN THE EVENING
     Route: 048
     Dates: start: 20181016
  21. DIGOSIN [Concomitant]
     Active Substance: DIGOXIN
     Dosage: 0.05?0.0595MG
     Route: 048
     Dates: start: 20160303

REACTIONS (10)
  - Pneumonia [Recovering/Resolving]
  - Melaena [Recovered/Resolved]
  - Pyrexia [Recovering/Resolving]
  - Product use issue [Unknown]
  - White blood cell count decreased [Recovered/Resolved]
  - Hypotension [Recovered/Resolved]
  - Upper respiratory tract inflammation [Recovering/Resolving]
  - Anaemia [Recovering/Resolving]
  - Off label use [Unknown]
  - Platelet count decreased [Recovering/Resolving]

NARRATIVE: CASE EVENT DATE: 20170321
